FAERS Safety Report 6296920-6 (Version None)
Quarter: 2009Q3

REPORT INFORMATION
  Report Type: 
  Country: None (occurrence: None)
  Receive Date: 20090804
  Receipt Date: 20090731
  Transmission Date: 20100115
  Serious: Yes (Other)
  Sender: FDA-Public Use
  Company Number: CA-ROXANE LABORATORIES, INC.-2009-RO-00762RO

PATIENT
  Age: 71 Year
  Sex: Male

DRUGS (10)
  1. METHADONE [Suspect]
     Indication: PAIN
  2. METHADONE [Suspect]
     Indication: BREAKTHROUGH PAIN
  3. METHADONE [Suspect]
     Dosage: 8 MG
  4. METHADONE [Suspect]
     Dosage: 16 MG
  5. METHADONE [Suspect]
  6. OXYCODONE [Suspect]
     Indication: BREAKTHROUGH PAIN
     Dosage: 20 MG
  7. OXYCODONE [Suspect]
  8. ACETAMINOPHEN [Suspect]
     Indication: PAIN
     Dosage: 4 G
  9. GABAPENTIN [Suspect]
     Indication: PAIN
     Dosage: 800 MG
  10. NORTRIPTYLINE HCL [Suspect]
     Indication: PAIN
     Dosage: 10 MG

REACTIONS (1)
  - PAIN [None]
